FAERS Safety Report 6565454-3 (Version None)
Quarter: 2010Q1

REPORT INFORMATION
  Report Type: 
  Country: None (occurrence: None)
  Receive Date: 20100201
  Receipt Date: 20100126
  Transmission Date: 20100710
  Serious: Yes (Hospitalization)
  Sender: FDA-Public Use
  Company Number: PHHY2010JP04316

PATIENT
  Age: 4 Year
  Sex: Male

DRUGS (2)
  1. ZADITEN [Suspect]
     Route: 048
  2. ZADITEN [Suspect]
     Dosage: 0.5 G, BID
     Route: 048

REACTIONS (3)
  - COUGH [None]
  - DYSURIA [None]
  - INCORRECT DOSE ADMINISTERED [None]
